FAERS Safety Report 16193424 (Version 1)
Quarter: 2019Q2

REPORT INFORMATION
  Report Type: Spontaneous
  Country: FI (occurrence: FI)
  Receive Date: 20190413
  Receipt Date: 20190413
  Transmission Date: 20190711
  Serious: Yes (Disabling)
  Sender: FDA-Public Use
  Company Number: FI-TEVA-2019-FI-1036346

PATIENT
  Age: 59 Year
  Sex: Female

DRUGS (3)
  1. LETROZOLE. [Suspect]
     Active Substance: LETROZOLE
     Indication: BREAST CANCER
     Route: 048
     Dates: start: 20171214, end: 20180517
  2. CALCICHEW D3 FORTE SITRUUNA [Concomitant]
     Indication: OSTEOPOROSIS PROPHYLAXIS
     Dosage: 2 DOSAGE FORMS DAILY;
     Route: 048
     Dates: start: 20171031
  3. LOSARTAN AND HYDROCHLOROTHIAZIDE [Concomitant]
     Active Substance: HYDROCHLOROTHIAZIDE\LOSARTAN POTASSIUM
     Indication: HYPERTENSION
     Dosage: 1 DOSAGE FORMS DAILY;
     Route: 048
     Dates: start: 20141122

REACTIONS (9)
  - Peripheral swelling [Recovering/Resolving]
  - Cartilage injury [Recovering/Resolving]
  - Joint swelling [Recovering/Resolving]
  - Vision blurred [Recovering/Resolving]
  - Hip arthroplasty [Recovering/Resolving]
  - Chills [Recovering/Resolving]
  - Osteonecrosis [Recovering/Resolving]
  - Osteoarthritis [Recovering/Resolving]
  - Arthralgia [Recovering/Resolving]

NARRATIVE: CASE EVENT DATE: 20180310
